FAERS Safety Report 15923697 (Version 2)
Quarter: 2019Q1

REPORT INFORMATION
  Report Type: Spontaneous
  Country: CN (occurrence: CN)
  Receive Date: 20190206
  Receipt Date: 20190213
  Transmission Date: 20190417
  Serious: Yes (Hospitalization)
  Sender: FDA-Public Use
  Company Number: CN-TAKEDA-2019MPI000388

PATIENT
  Age: 69 Year
  Sex: Male
  Weight: 80 kg

DRUGS (2)
  1. DEXAMETHASONE. [Suspect]
     Active Substance: DEXAMETHASONE
     Indication: PLASMA CELL MYELOMA
     Dosage: 20 MILLIGRAM, Q3WEEKS
     Route: 048
     Dates: start: 20181211, end: 20181222
  2. VELCADE [Suspect]
     Active Substance: BORTEZOMIB
     Indication: PLASMA CELL MYELOMA
     Dosage: 2.47 MILLIGRAM, Q3WEEKS
     Route: 058
     Dates: start: 20181211, end: 20181221

REACTIONS (2)
  - Lower respiratory tract infection bacterial [Recovered/Resolved]
  - Pulmonary mycosis [Recovered/Resolved]

NARRATIVE: CASE EVENT DATE: 20181229
